FAERS Safety Report 4910075-9 (Version None)
Quarter: 2006Q1

REPORT INFORMATION
  Report Type: 
  Country: None (occurrence: None)
  Receive Date: 20060208
  Receipt Date: 20060202
  Transmission Date: 20060701
  Serious: Yes (Other)
  Sender: FDA-Public Use
  Company Number: USA-2006-0023504

PATIENT
  Age: 51 Year
  Sex: Female

DRUGS (1)
  1. CEFDITOREN PIVOXIL [Suspect]
     Dosage: MG, ORAL
     Route: 048
     Dates: start: 20040801, end: 20040901

REACTIONS (1)
  - LIVER DISORDER [None]
